FAERS Safety Report 26162183 (Version 1)
Quarter: 2025Q4

REPORT INFORMATION
  Report Type: Spontaneous
  Country: NZ (occurrence: NZ)
  Receive Date: 20251216
  Receipt Date: 20251216
  Transmission Date: 20260118
  Serious: Yes (Life-Threatening)
  Sender: MERCK SHARP & DOHME LLC
  Company Number: NZ-009507513-2358362

PATIENT

DRUGS (1)
  1. SUGAMMADEX SODIUM [Suspect]
     Active Substance: SUGAMMADEX SODIUM
     Indication: Anaesthesia

REACTIONS (4)
  - Drug hypersensitivity [Unknown]
  - Hypotension [Unknown]
  - Rash [Unknown]
  - Tachycardia [Unknown]
